FAERS Safety Report 8215303-2 (Version None)
Quarter: 2012Q1

REPORT INFORMATION
  Report Type: 
  Country: None (occurrence: None)
  Receive Date: 20120316
  Receipt Date: 20120309
  Transmission Date: 20120608
  Serious: Yes (Hospitalization)
  Sender: FDA-Public Use
  Company Number: US-B.I. PHARMACEUTICALS,INC./RIDGEFIELD-2012-BP-04563BP

PATIENT
  Age: 77 Year
  Sex: Female

DRUGS (11)
  1. ASPIRIN [Concomitant]
  2. NITROSTAT [Concomitant]
  3. METHIMAZOLE [Concomitant]
  4. AMLODIPINE [Concomitant]
  5. HYDROCODONE BITARTRATE [Concomitant]
  6. ALPRAZOLAM [Concomitant]
  7. HUMULIN INSULIN [Concomitant]
  8. NEXIUM [Concomitant]
  9. PRADAXA [Suspect]
     Indication: ATRIAL FIBRILLATION
     Dosage: 300 MG
     Route: 048
     Dates: start: 20110101, end: 20120301
  10. SIMVASTATIN [Concomitant]
  11. ISOSORBIDE DINITRATE [Concomitant]

REACTIONS (1)
  - EMBOLIC STROKE [None]
